FAERS Safety Report 4548188-6 (Version None)
Quarter: 2005Q1

REPORT INFORMATION
  Report Type: 
  Country: None (occurrence: None)
  Receive Date: 20050105
  Receipt Date: 20050105
  Transmission Date: 20050727
  Serious: No
  Sender: FDA-Public Use
  Company Number: None

PATIENT
  Age: 40 Year
  Sex: Female
  Weight: 58.0604 kg

DRUGS (1)
  1. YASMIN [Suspect]
     Indication: MENSTRUATION IRREGULAR
     Dosage: 1 Q D

REACTIONS (7)
  - ANOREXIA [None]
  - DIARRHOEA [None]
  - FAT INTOLERANCE [None]
  - FOOD INTOLERANCE [None]
  - GALLBLADDER DISORDER [None]
  - NAUSEA [None]
  - WEIGHT DECREASED [None]
